FAERS Safety Report 17883010 (Version 1)
Quarter: 2020Q2

REPORT INFORMATION
  Report Type: Spontaneous
  Country: DE (occurrence: DE)
  Receive Date: 20200610
  Receipt Date: 20200610
  Transmission Date: 20200714
  Serious: Yes (Hospitalization)
  Sender: FDA-Public Use
  Company Number: DE-TEVA-2020-DE-1247528

PATIENT
  Age: 71 Year
  Sex: Male
  Weight: 92 kg

DRUGS (7)
  1. TROSPIUM [Concomitant]
     Active Substance: TROSPIUM
     Dosage: 30 MILLIGRAM DAILY;  0-0-1-0
     Route: 048
  2. SIMVA-ARISTO 20MG [Concomitant]
     Dosage: 20 MILLIGRAM DAILY; 0-0-1-0
     Route: 048
  3. COAPROVEL 300MG/12,5MG [Interacting]
     Active Substance: HYDROCHLOROTHIAZIDE\IRBESARTAN
     Dosage: 1 DOSAGE FORMS DAILY; 12.5|300 MG, 1-0-0-0
     Route: 048
  4. TARDYFERON DEPOT-EISEN(II)-SULFAT 80MG [Concomitant]
     Dosage: 80 MG, 2-0-2-0, RETARD-TABLET
     Route: 048
  5. TAMSULOSIN [Suspect]
     Active Substance: TAMSULOSIN
     Dosage: .4 MILLIGRAM DAILY;  0-0-1-0
     Route: 048
  6. TEBONIN INTENS 120MG [Interacting]
     Active Substance: GINKGO
     Dosage: 120 MILLIGRAM DAILY; 0-0-1-0
     Route: 048
  7. ALLOPURINOL. [Concomitant]
     Active Substance: ALLOPURINOL
     Dosage: 300 MG, 0.5-0-0-0, TABLET
     Route: 048

REACTIONS (9)
  - Product monitoring error [Unknown]
  - Product prescribing error [Unknown]
  - Tachycardia [Unknown]
  - Dehydration [Unknown]
  - Labelled drug-drug interaction medication error [Unknown]
  - Orthostatic intolerance [Unknown]
  - Dizziness [Unknown]
  - Syncope [Unknown]
  - Hypotension [Unknown]
